FAERS Safety Report 5451840-1 (Version None)
Quarter: 2007Q3

REPORT INFORMATION
  Report Type: 
  Country: None (occurrence: None)
  Receive Date: 20070912
  Receipt Date: 20070829
  Transmission Date: 20080115
  Serious: Yes (Hospitalization)
  Sender: FDA-Public Use
  Company Number: B0485224A

PATIENT
  Age: 64 Year
  Sex: Female

DRUGS (4)
  1. PAROXETINE HYDROCHLORIDE ) (GENERIC) [Suspect]
     Indication: DEPRESSION
  2. BROMAZEPAM [Concomitant]
  3. RISEDRONIC ACID [Concomitant]
  4. CALCIUM SALT [Concomitant]

REACTIONS (8)
  - ANOREXIA [None]
  - COGNITIVE DISORDER [None]
  - IATROGENIC INJURY [None]
  - INAPPROPRIATE ANTIDIURETIC HORMONE SECRETION [None]
  - MOTOR DYSFUNCTION [None]
  - PARAESTHESIA [None]
  - PHOSPHENES [None]
  - VOMITING [None]
